FAERS Safety Report 9914655 (Version 1)
Quarter: 2014Q1

REPORT INFORMATION
  Report Type: Spontaneous
  Country: CH (occurrence: CH)
  Receive Date: 20140220
  Receipt Date: 20140220
  Transmission Date: 20141002
  Serious: Yes (Other)
  Sender: FDA-Public Use
  Company Number: CH-BAYER-2014-024857

PATIENT
  Sex: Female

DRUGS (1)
  1. BETAFERON [Suspect]
     Indication: MULTIPLE SCLEROSIS
     Dosage: 250 ?G, TIW
     Route: 058
     Dates: start: 19960101

REACTIONS (3)
  - Multiple sclerosis [None]
  - Multiple sclerosis relapse [None]
  - Hypoaesthesia [None]
